FAERS Safety Report 8004428-2 (Version None)
Quarter: 2011Q4

REPORT INFORMATION
  Report Type: 
  Country: None (occurrence: None)
  Receive Date: 20111221
  Receipt Date: 20111221
  Transmission Date: 20120403
  Serious: Yes (Other)
  Sender: FDA-Public Use
  Company Number: None

PATIENT
  Sex: Female
  Weight: 62.1428 kg

DRUGS (1)
  1. MACROBID [Suspect]
     Indication: URINARY TRACT INFECTION
     Dosage: 100MG BID ORAL
     Route: 048
     Dates: start: 20110918, end: 20110923

REACTIONS (7)
  - ABDOMINAL PAIN UPPER [None]
  - MIDDLE INSOMNIA [None]
  - BODY TEMPERATURE INCREASED [None]
  - MALAISE [None]
  - DYSPNOEA [None]
  - PRODUCTIVE COUGH [None]
  - WEIGHT DECREASED [None]
